FAERS Safety Report 11867773 (Version 2)
Quarter: 2016Q1

REPORT INFORMATION
  Report Type: Spontaneous
  Country: IE (occurrence: IE)
  Receive Date: 20151224
  Receipt Date: 20160115
  Transmission Date: 20160526
  Serious: Yes (Disabling, Other)
  Sender: FDA-Public Use
  Company Number: IE-AMGEN-IRLSP2015135681

PATIENT
  Sex: Female
  Weight: 74 kg

DRUGS (10)
  1. IDEOS [Concomitant]
     Active Substance: CALCIUM CARBONATE\CHOLECALCIFEROL
  2. FISH OIL [Concomitant]
     Active Substance: FISH OIL
     Route: 065
  3. CALCIUM [Concomitant]
     Active Substance: CALCIUM
     Route: 065
  4. EMAZOLE [Concomitant]
     Indication: GASTRITIS
  5. VITAMIN B [Concomitant]
     Active Substance: VITAMIN B
     Route: 065
  6. EMAZOLE [Concomitant]
     Indication: OESOPHAGITIS
     Dosage: 20 MG, QD
     Route: 065
  7. PROLIA [Suspect]
     Active Substance: DENOSUMAB
     Indication: OSTEOPOROSIS
     Dosage: UNK, Q6MO
     Route: 065
     Dates: start: 20150122
  8. LYRICA [Concomitant]
     Active Substance: PREGABALIN
     Indication: NECK PAIN
     Dosage: 25 MG, UNK
     Route: 065
  9. LYRICA [Concomitant]
     Active Substance: PREGABALIN
     Indication: SLEEP DISORDER
  10. VITAMIN D                          /00107901/ [Concomitant]
     Active Substance: ERGOCALCIFEROL

REACTIONS (11)
  - Eye swelling [Not Recovered/Not Resolved]
  - Photophobia [Not Recovered/Not Resolved]
  - Extrasystoles [Not Recovered/Not Resolved]
  - Palpitations [Not Recovered/Not Resolved]
  - Eye pain [Not Recovered/Not Resolved]
  - Arrhythmia [Not Recovered/Not Resolved]
  - Swelling face [Not Recovered/Not Resolved]
  - Rash [Not Recovered/Not Resolved]
  - Bradycardia [Not Recovered/Not Resolved]
  - Flushing [Unknown]
  - Tachycardia [Not Recovered/Not Resolved]

NARRATIVE: CASE EVENT DATE: 20150212
